FAERS Safety Report 21609119 (Version 1)
Quarter: 2022Q4

REPORT INFORMATION
  Report Type: Spontaneous
  Country: DE (occurrence: DE)
  Receive Date: 20221117
  Receipt Date: 20221117
  Transmission Date: 20230113
  Serious: Yes (Hospitalization)
  Sender: FDA-Public Use
  Company Number: DE-ADRED-08129-01

PATIENT
  Age: 61 Year
  Sex: Male
  Weight: 85 kg

DRUGS (4)
  1. CANDESARTAN [Suspect]
     Active Substance: CANDESARTAN
     Indication: Product used for unknown indication
     Dosage: 32 MILLIGRAM TABLET, 1-0-0-0
     Route: 048
  2. MARCUMAR [Suspect]
     Active Substance: PHENPROCOUMON
     Indication: Product used for unknown indication
     Dosage: 3 MILLIGRAM, 0-0-1-0
     Route: 048
  3. MARCUMAR [Suspect]
     Active Substance: PHENPROCOUMON
     Dosage: 3 MILLIGRAM,0-0-0.5-0
     Route: 048
  4. SYMBICORT [Concomitant]
     Active Substance: BUDESONIDE\FORMOTEROL FUMARATE DIHYDRATE
     Dosage: UNK, NEEDS, DRY POWDER INHALER
     Route: 055

REACTIONS (7)
  - Ureterolithiasis [Unknown]
  - International normalised ratio abnormal [Unknown]
  - Flank pain [Unknown]
  - Product monitoring error [Unknown]
  - Product prescribing error [Unknown]
  - Haematuria [Unknown]
  - Renal failure [Unknown]
